FAERS Safety Report 25315330 (Version 3)
Quarter: 2025Q3

REPORT INFORMATION
  Report Type: Spontaneous
  Country: US (occurrence: US)
  Receive Date: 20250514
  Receipt Date: 20250711
  Transmission Date: 20251020
  Serious: Yes (Other)
  Sender: MALLINCKRODT
  Company Number: US-MALLINCKRODT-MNK202502038

PATIENT
  Age: 44 Year
  Sex: Male
  Weight: 194 kg

DRUGS (3)
  1. CORTICOTROPIN [Suspect]
     Active Substance: CORTICOTROPIN
     Indication: Polymyositis
     Route: 058
     Dates: start: 202411
  2. PREDNISONE [Suspect]
     Active Substance: PREDNISONE
     Indication: Product used for unknown indication
  3. PREDNISONE [Suspect]
     Active Substance: PREDNISONE

REACTIONS (5)
  - Foot fracture [Unknown]
  - Polymyositis [Unknown]
  - Condition aggravated [Unknown]
  - Pain [Not Recovered/Not Resolved]
  - Malaise [Unknown]
